FAERS Safety Report 7315370-4 (Version None)
Quarter: 2011Q1

REPORT INFORMATION
  Report Type: 
  Country: None (occurrence: None)
  Receive Date: 20110218
  Receipt Date: 20110218
  Transmission Date: 20110831
  Serious: Yes (Other)
  Sender: FDA-Public Use
  Company Number: None

PATIENT
  Age: 35 Year
  Sex: Female
  Weight: 54.8852 kg

DRUGS (1)
  1. VIMPAT [Suspect]
     Indication: CONVULSION
     Dates: start: 20101018, end: 20101224

REACTIONS (3)
  - MIGRAINE [None]
  - VOMITING [None]
  - VERTIGO POSITIONAL [None]
